FAERS Safety Report 25267253 (Version 1)
Quarter: 2025Q2

REPORT INFORMATION
  Report Type: Report from Study
  Country: US (occurrence: US)
  Receive Date: 20250505
  Receipt Date: 20250505
  Transmission Date: 20250716
  Serious: Yes (Hospitalization, Other)
  Sender: TAKEDA
  Company Number: US-TAKEDA-2023TUS105180

PATIENT
  Sex: Female

DRUGS (18)
  1. IXAZOMIB [Suspect]
     Active Substance: IXAZOMIB
     Indication: Plasma cell myeloma
  2. IXAZOMIB [Suspect]
     Active Substance: IXAZOMIB
     Indication: Colon cancer
  3. IXAZOMIB [Suspect]
     Active Substance: IXAZOMIB
     Dosage: 4 MILLIGRAM, QD
     Dates: start: 202211
  4. BACLOFEN [Concomitant]
     Active Substance: BACLOFEN
  5. DEXAMETHASONE [Concomitant]
     Active Substance: DEXAMETHASONE
  6. FLOMAX [Concomitant]
     Active Substance: TAMSULOSIN HYDROCHLORIDE
  7. FOSAMAX [Concomitant]
     Active Substance: ALENDRONATE SODIUM
  8. GABAPENTIN [Concomitant]
     Active Substance: GABAPENTIN
  9. MIRENA [Concomitant]
     Active Substance: LEVONORGESTREL
  10. ONDANSETRON [Concomitant]
     Active Substance: ONDANSETRON
  11. OXCARBAZEPINE [Concomitant]
     Active Substance: OXCARBAZEPINE
  12. PAXIL [Concomitant]
     Active Substance: PAROXETINE HYDROCHLORIDE
  13. POLYETHYLENE GLYCOL [Concomitant]
     Active Substance: POLYETHYLENE GLYCOL
  14. REVLIMID [Concomitant]
     Active Substance: LENALIDOMIDE
  15. TECFIDERA [Concomitant]
     Active Substance: DIMETHYL FUMARATE
  16. VITAMIN D3 [Concomitant]
     Active Substance: CHOLECALCIFEROL
  17. XANAX [Concomitant]
     Active Substance: ALPRAZOLAM
  18. LINZESS [Concomitant]
     Active Substance: LINACLOTIDE

REACTIONS (5)
  - Pneumonia aspiration [Unknown]
  - Intestinal obstruction [Unknown]
  - Hepatic enzyme increased [Recovered/Resolved]
  - Malaise [Unknown]
  - Product distribution issue [Unknown]
